FAERS Safety Report 9177675 (Version 3)
Quarter: 2013Q2

REPORT INFORMATION
  Report Type: Report from Study
  Country: US (occurrence: US)
  Receive Date: 20130321
  Receipt Date: 20130412
  Transmission Date: 20140414
  Serious: Yes (Death, Hospitalization)
  Sender: FDA-Public Use
  Company Number: US-MPIJNJ-2012-09214

PATIENT
  Age: 71 Year
  Sex: Female
  Weight: 57.14 kg

DRUGS (32)
  1. VELCADE [Suspect]
     Indication: PLASMA CELL MYELOMA
     Dosage: 2.1 MG, CYCLIC
     Route: 042
     Dates: start: 20120927, end: 20121203
  2. DEXAMETHASONE [Suspect]
     Indication: PLASMA CELL MYELOMA
     Dosage: 20 MG, CYCLIC
     Route: 048
     Dates: start: 20120927, end: 20121211
  3. BENDAMUSTINE [Suspect]
     Indication: PLASMA CELL MYELOMA
     Dosage: 79.2 MG, CYCLIC
     Route: 042
     Dates: start: 20120927, end: 20121127
  4. DIFLUCAN [Concomitant]
     Indication: CANDIDA INFECTION
     Dosage: 200 MG, QD
     Route: 048
     Dates: start: 20121217, end: 20121231
  5. DIFLUCAN [Concomitant]
     Indication: OROPHARYNGEAL PAIN
  6. LEVAQUIN [Concomitant]
     Indication: NEUTROPENIA
     Dosage: 500 MG, QD
     Route: 048
     Dates: start: 20121101, end: 20121108
  7. MYLANTA                            /00036701/ [Concomitant]
     Indication: DYSPEPSIA
     Dosage: UNK, PRN
     Route: 048
     Dates: start: 20121108
  8. Z-PAK [Concomitant]
     Indication: SINUSITIS
     Dosage: 250 MG, QD
     Route: 048
     Dates: start: 20121203, end: 20121208
  9. NORMAL SALINE [Concomitant]
     Indication: DEHYDRATION
     Dosage: 500 ML, UNK
     Route: 042
     Dates: start: 20121210, end: 20121210
  10. EMEND [Concomitant]
     Indication: PROPHYLAXIS OF NAUSEA AND VOMITING
     Dosage: 150 MG, CYCLIC
     Route: 042
     Dates: start: 20120927
  11. ALOXI [Concomitant]
     Indication: PROPHYLAXIS
     Dosage: 0.25 MG, CYCLIC
     Route: 042
     Dates: start: 20120927
  12. BENADRYL                           /00000402/ [Concomitant]
     Indication: PROPHYLAXIS
     Dosage: 25 MG, CYCLIC
     Dates: start: 20120927
  13. TYLENOL /00020001/ [Concomitant]
     Indication: PROPHYLAXIS
     Dosage: 650 MG, QD
     Route: 048
     Dates: start: 20120927, end: 20120928
  14. COMPAZINE                          /00013302/ [Concomitant]
     Indication: PROPHYLAXIS
     Dosage: 10 MG, CYCLIC
     Route: 048
     Dates: start: 20120928
  15. DEXAMETHASONE [Concomitant]
     Indication: PROPHYLAXIS
     Dosage: 12 MG, CYCLIC
     Route: 042
     Dates: start: 20120927
  16. DEXAMETHASONE [Concomitant]
     Dosage: 8 MG, CYCLIC
     Route: 042
     Dates: start: 20120928
  17. DEXAMETHASONE [Concomitant]
     Dosage: 8 MG, CYCLIC
     Route: 042
     Dates: start: 20121011
  18. DILAUDID [Concomitant]
     Indication: MUSCULOSKELETAL CHEST PAIN
     Dosage: 1 MG, PRN
     Route: 048
     Dates: start: 20120915
  19. SYNTHROID [Concomitant]
     Indication: HYPOTHYROIDISM
     Dosage: UNK, QD
     Route: 048
     Dates: start: 2005
  20. OXYCODONE [Concomitant]
     Indication: MUSCULOSKELETAL CHEST PAIN
     Dosage: 20 MG, BID
     Route: 048
     Dates: start: 20120914
  21. SPIRONOLACTONE [Concomitant]
     Indication: HYPERTENSION
     Dosage: 50 MG, QD
     Route: 048
     Dates: start: 2002
  22. MEGACE [Concomitant]
     Indication: DECREASED APPETITE
     Dosage: 200 MG, QD
     Route: 048
     Dates: start: 20120917
  23. ZOFRAN                             /00955301/ [Concomitant]
     Indication: NAUSEA
     Dosage: 8 MG, PRN
     Route: 048
     Dates: start: 20120912
  24. ATIVAN [Concomitant]
     Indication: ANXIETY
     Dosage: 1 MG, PRN
     Route: 048
     Dates: start: 20120917
  25. AMLODIPINE [Concomitant]
     Indication: HYPERTENSION
     Dosage: 5 MG, QD
     Route: 048
     Dates: start: 2002
  26. SENOKOT                            /00142201/ [Concomitant]
     Indication: CONSTIPATION
     Dosage: UNK, BID
     Route: 048
     Dates: start: 20120915
  27. MULTIVITAMIN                       /00831701/ [Concomitant]
     Indication: SUPPLEMENTATION THERAPY
     Dosage: UNK, QD
     Route: 048
     Dates: start: 2010
  28. CALCIUM WITH VITAMIN D             /00944201/ [Concomitant]
     Indication: SUPPLEMENTATION THERAPY
     Dosage: UNK, QD
     Route: 048
     Dates: start: 2005
  29. FLEET ENEMA                        /00103901/ [Concomitant]
     Indication: CONSTIPATION
     Dosage: UNK, PRN
     Route: 054
     Dates: start: 20120927
  30. MAGNESIUM CITRATE [Concomitant]
     Indication: CONSTIPATION
     Dosage: UNK, PRN
     Route: 048
     Dates: start: 20120927
  31. PROTONIX                           /01263201/ [Concomitant]
     Indication: ABDOMINAL PAIN UPPER
     Dosage: 40 MG, QD
     Route: 048
     Dates: start: 20121004
  32. CETAPHIL                           /02314901/ [Concomitant]
     Indication: RASH
     Dosage: UNK, PRN
     Route: 061
     Dates: start: 20121010

REACTIONS (2)
  - Neutropenic sepsis [Recovered/Resolved]
  - Pneumonia [Fatal]
